FAERS Safety Report 13012445 (Version 1)
Quarter: 2016Q4

REPORT INFORMATION
  Report Type: Spontaneous
  Country: US (occurrence: US)
  Receive Date: 20161208
  Receipt Date: 20161208
  Transmission Date: 20170207
  Serious: Yes (Hospitalization)
  Sender: FDA-Public Use
  Company Number: None

PATIENT
  Age: 54 Year
  Sex: Female

DRUGS (18)
  1. KALYDECO [Suspect]
     Active Substance: IVACAFTOR
     Indication: CYSTIC FIBROSIS
     Route: 048
     Dates: start: 20130911
  2. BUPROPION. [Concomitant]
     Active Substance: BUPROPION
  3. COLISTIN [Concomitant]
     Active Substance: COLISTIN
  4. OXYBUTYNIN [Concomitant]
     Active Substance: OXYBUTYNIN
  5. SOD CHL [Concomitant]
  6. OMEPRAZOLE. [Concomitant]
     Active Substance: OMEPRAZOLE
  7. MONTELUKAST [Concomitant]
     Active Substance: MONTELUKAST SODIUM
  8. PULMOZYME [Suspect]
     Active Substance: DORNASE ALFA
     Dosage: 2.5 ML QD NEB
     Dates: start: 20140325
  9. CLOTRIAMAZOLE [Concomitant]
  10. D [Concomitant]
  11. MIRALAX [Concomitant]
     Active Substance: POLYETHYLENE GLYCOL 3350
  12. VITAMIN A [Concomitant]
     Active Substance: VITAMIN A
  13. NOVOLOG [Concomitant]
     Active Substance: INSULIN ASPART
  14. FEXOFENADINE [Concomitant]
     Active Substance: FEXOFENADINE\FEXOFENADINE HYDROCHLORIDE
  15. EFFEXOR [Concomitant]
     Active Substance: VENLAFAXINE HYDROCHLORIDE
  16. CETIRIZINE [Concomitant]
     Active Substance: CETIRIZINE HYDROCHLORIDE
  17. IPRATROPIUM [Concomitant]
     Active Substance: IPRATROPIUM
  18. RANITIDINE. [Concomitant]
     Active Substance: RANITIDINE

REACTIONS (1)
  - Hospitalisation [None]
